FAERS Safety Report 4413022-1 (Version None)
Quarter: 2004Q3

REPORT INFORMATION
  Report Type: 
  Country: None (occurrence: None)
  Receive Date: 20040730
  Receipt Date: 20040730
  Transmission Date: 20050211
  Serious: Yes (Hospitalization)
  Sender: FDA-Public Use
  Company Number: None

PATIENT
  Age: 79 Year
  Sex: Male
  Weight: 77.1115 kg

DRUGS (4)
  1. WARFARIN SODIUM [Suspect]
     Indication: DEEP VEIN THROMBOSIS
     Dosage: VARIES
     Dates: start: 20021201, end: 20040510
  2. BACITRACTIN [Concomitant]
  3. LOVASTATIN [Concomitant]
  4. OXYBUTYNIN CHLORIDE [Concomitant]

REACTIONS (1)
  - RECTAL HAEMORRHAGE [None]
